FAERS Safety Report 6251719-1 (Version None)
Quarter: 2009Q2

REPORT INFORMATION
  Report Type: 
  Country: None (occurrence: None)
  Receive Date: 20090630
  Receipt Date: 20090629
  Transmission Date: 20091009
  Serious: Yes (Other)
  Sender: FDA-Public Use
  Company Number: DE-PFIZER INC-2009210673

PATIENT
  Age: 91 Year

DRUGS (1)
  1. TOVIAZ [Suspect]
     Dosage: UNK
     Route: 048
     Dates: end: 20090101

REACTIONS (16)
  - ANGINA PECTORIS [None]
  - CARDIOVASCULAR INSUFFICIENCY [None]
  - DECREASED APPETITE [None]
  - DIZZINESS [None]
  - DYSGRAPHIA [None]
  - FATIGUE [None]
  - FEELING COLD [None]
  - GASTRITIS [None]
  - LOSS OF CONSCIOUSNESS [None]
  - NASAL OEDEMA [None]
  - OEDEMA MOUTH [None]
  - ORAL HERPES [None]
  - OROPHARYNGEAL PAIN [None]
  - PAIN IN EXTREMITY [None]
  - SWOLLEN TONGUE [None]
  - TONGUE HAEMORRHAGE [None]
